FAERS Safety Report 8267461-1 (Version None)
Quarter: 2012Q2

REPORT INFORMATION
  Report Type: 
  Country: None (occurrence: None)
  Receive Date: 20120409
  Receipt Date: 20120329
  Transmission Date: 20120825
  Serious: Yes (Death, Other)
  Sender: FDA-Public Use
  Company Number: JP-CELGENEUS-087-50794-12040589

PATIENT
  Age: 64 Year
  Sex: Male
  Weight: 77 kg

DRUGS (10)
  1. ZOSYN [Concomitant]
     Route: 065
     Dates: start: 20111026, end: 20111026
  2. VIDAZA [Suspect]
     Dosage: 75 MILLIGRAM/SQ. METER
     Route: 058
     Dates: start: 20110804, end: 20110811
  3. VIDAZA [Suspect]
     Dosage: 75 MILLIGRAM/SQ. METER
     Route: 058
     Dates: start: 20111024, end: 20111027
  4. COTRIM [Concomitant]
     Route: 065
  5. ITRACONAZOLE [Concomitant]
     Route: 065
  6. VANCOMYCIN [Concomitant]
     Route: 065
     Dates: start: 20111026, end: 20111026
  7. AMIKACIN SULFATE [Concomitant]
     Route: 065
     Dates: start: 20111026, end: 20111026
  8. KYTRIL [Concomitant]
     Route: 065
     Dates: start: 20110616, end: 20110616
  9. VIDAZA [Suspect]
     Dosage: 75 MILLIGRAM/SQ. METER
     Route: 041
     Dates: start: 20110616, end: 20110622
  10. EXJADE [Concomitant]
     Route: 065

REACTIONS (2)
  - SEPSIS [None]
  - NEUTROPHIL COUNT DECREASED [None]
